FAERS Safety Report 7593413-0 (Version None)
Quarter: 2011Q2

REPORT INFORMATION
  Report Type: 
  Country: None (occurrence: None)
  Receive Date: 20110628
  Receipt Date: 20110126
  Transmission Date: 20111010
  Serious: Yes (Other)
  Sender: FDA-Public Use
  Company Number: 2011MA007809

PATIENT
  Age: 59 Year

DRUGS (2)
  1. MADOPAR (MADOPAR) [Suspect]
     Dosage: PO
     Route: 048
     Dates: start: 20070101
  2. PRAMIPEXOLE DIHYDROCHLORIDE [Suspect]
     Indication: PARKINSON'S DISEASE
     Dosage: 1.5 MG, TID, PO
     Route: 048
     Dates: start: 20060101

REACTIONS (1)
  - GAMBLING [None]
